FAERS Safety Report 6532536-1 (Version None)
Quarter: 2010Q1

REPORT INFORMATION
  Report Type: 
  Country: None (occurrence: None)
  Receive Date: 20100111
  Receipt Date: 20091229
  Transmission Date: 20100710
  Serious: Yes (Other)
  Sender: FDA-Public Use
  Company Number: US-JNJFOC-20100100584

PATIENT
  Age: 56 Year
  Sex: Female
  Weight: 104.33 kg

DRUGS (8)
  1. TYLENOL (CAPLET) [Suspect]
     Route: 048
  2. TYLENOL (CAPLET) [Suspect]
     Indication: ARTHRALGIA
     Dosage: 1300 MG EVERY 6-8 HOURS ^UNTIL BOTTLE WAS EMPTY^
     Route: 048
  3. NAPROXEN [Concomitant]
     Indication: ARTHRITIS
  4. UNKNOWN MEDICATION [Concomitant]
     Indication: HYPERTENSION
  5. CALCIUM [Concomitant]
     Indication: GASTRIC BYPASS
  6. CYCLOBENZAPRINE [Concomitant]
     Indication: MUSCLE SPASMS
  7. PREMPRO [Concomitant]
     Indication: HORMONE REPLACEMENT THERAPY
  8. FUROSEMIDE [Concomitant]
     Indication: FLUID RETENTION

REACTIONS (4)
  - ABDOMINAL PAIN UPPER [None]
  - DIARRHOEA [None]
  - NAUSEA [None]
  - PRODUCT QUALITY ISSUE [None]
